FAERS Safety Report 18041081 (Version 1)
Quarter: 2020Q3

REPORT INFORMATION
  Report Type: Spontaneous
  Country: PL (occurrence: PL)
  Receive Date: 20200718
  Receipt Date: 20200718
  Transmission Date: 20201103
  Serious: Yes (Other)
  Sender: FDA-Public Use
  Company Number: NVSC2020PL197701

PATIENT
  Age: 58 Year
  Sex: Male
  Weight: 89 kg

DRUGS (3)
  1. METHOTREXATE. [Suspect]
     Active Substance: METHOTREXATE
     Indication: SEBORRHOEIC DERMATITIS
     Dosage: 25 MG, QW
     Route: 048
     Dates: start: 20160726, end: 20161017
  2. HUMIRA [Concomitant]
     Active Substance: ADALIMUMAB
     Indication: SEBORRHOEIC DERMATITIS
     Dosage: 40 MG, BIW
     Route: 058
     Dates: start: 20160725
  3. ACIDUM FOLICUM [Concomitant]
     Active Substance: FOLIC ACID
     Indication: SEBORRHOEIC DERMATITIS
     Dosage: 15 MG, QW
     Route: 048
     Dates: start: 20160728, end: 20161017

REACTIONS (3)
  - Abdominal pain [Recovering/Resolving]
  - Malaise [Recovering/Resolving]
  - Visual field defect [Recovering/Resolving]

NARRATIVE: CASE EVENT DATE: 201608
